FAERS Safety Report 9025467 (Version 1)
Quarter: 2013Q1

REPORT INFORMATION
  Report Type: Spontaneous
  Country: DK (occurrence: DK)
  Receive Date: 20130122
  Receipt Date: 20130122
  Transmission Date: 20140127
  Serious: Yes (Death, Life-Threatening, Hospitalization)
  Sender: FDA-Public Use
  Company Number: DK-ASTRAZENECA-2013SE04158

PATIENT
  Age: 32 Year
  Sex: Female
  Weight: 83 kg

DRUGS (14)
  1. SEROQUEL [Suspect]
     Indication: PSYCHOTIC DISORDER
     Route: 048
     Dates: start: 19921122, end: 20050714
  2. RISPERDAL [Suspect]
     Indication: SCHIZOPHRENIA
     Route: 048
     Dates: start: 20050706, end: 20050714
  3. RISPERDAL [Suspect]
     Indication: SCHIZOPHRENIA
     Dosage: 25 MG EVERY 14TH DAY
     Route: 030
     Dates: start: 20050706, end: 20050714
  4. RIVOTRIL [Suspect]
     Indication: PSYCHOTIC DISORDER
     Route: 048
     Dates: start: 19940810, end: 20050714
  5. ORAP [Suspect]
     Indication: PSYCHOTIC DISORDER
     Route: 048
     Dates: start: 19921014, end: 20050714
  6. ORAP [Suspect]
     Indication: PSYCHOTIC DISORDER
     Route: 048
  7. DISIPAL [Suspect]
     Indication: ADVERSE DRUG REACTION
     Route: 048
     Dates: start: 19990714, end: 20050714
  8. TRUXAL [Suspect]
     Indication: PSYCHOTIC DISORDER
     Dosage: 50-100 MG AS NEEDED UP TO 250 MG PER DAY
     Route: 048
     Dates: start: 19980712, end: 20050714
  9. PANTOLOC [Concomitant]
     Indication: GASTRIC ULCER
     Route: 048
     Dates: start: 19990815, end: 20050714
  10. NOVYNETTE [Concomitant]
     Route: 048
  11. GAVISCON [Concomitant]
     Dosage: 15 ML AS REQUIRED NOT MORE THAN 3 TIMES PER DAY
     Route: 048
  12. OXAZEPAM [Concomitant]
     Dosage: 15 MG AS NEEDED UP TO 4 TIMES PER DAY
  13. PRIMPERAN [Concomitant]
     Dosage: 20 MG AS NEEDED MORE THAN 2 TIMES PER DAY
     Route: 054
  14. PINEX [Concomitant]
     Dosage: 1 G ACCORDING TO NEED NO MORE THAN 3 TIMES PER DAY
     Route: 048

REACTIONS (8)
  - Sudden death [Fatal]
  - Convulsion [Fatal]
  - Vomiting [Fatal]
  - Weight increased [Fatal]
  - Neuroleptic malignant syndrome [Fatal]
  - Hallucination [Fatal]
  - Restlessness [Fatal]
  - Sleep disorder [Fatal]
